FAERS Safety Report 9830896 (Version 1)
Quarter: 2014Q1

REPORT INFORMATION
  Report Type: Spontaneous
  Country: SE (occurrence: SE)
  Receive Date: 20140120
  Receipt Date: 20140120
  Transmission Date: 20141002
  Serious: Yes (Other)
  Sender: FDA-Public Use
  Company Number: SE-ABBVIE-14P-150-1192648-00

PATIENT
  Sex: Female

DRUGS (1)
  1. ERGENYL RETARD [Suspect]
     Indication: PRODUCT USED FOR UNKNOWN INDICATION
     Route: 065
     Dates: start: 2009

REACTIONS (12)
  - Convulsion [Unknown]
  - Sleep disorder [Unknown]
  - Diarrhoea [Unknown]
  - Weight increased [Unknown]
  - Hyperventilation [Unknown]
  - Hyperhidrosis [Unknown]
  - Alopecia [Unknown]
  - Hair growth abnormal [Unknown]
  - Dizziness [Unknown]
  - Dysphonia [Unknown]
  - Mood altered [Unknown]
  - Headache [Unknown]
